FAERS Safety Report 21926612 (Version 2)
Quarter: 2023Q1

REPORT INFORMATION
  Report Type: Report from Study
  Country: CN (occurrence: CN)
  Receive Date: 20230130
  Receipt Date: 20230215
  Transmission Date: 20230418
  Serious: Yes (Hospitalization)
  Sender: FDA-Public Use
  Company Number: CN-PFIZER INC-PV202300012760

PATIENT
  Age: 65 Year
  Sex: Female

DRUGS (6)
  1. PALBOCICLIB [Suspect]
     Active Substance: PALBOCICLIB
     Indication: Breast cancer
     Dosage: 125 MG, 1X/DAY [125 MG (125 MG,1 IN 1 D)]
     Route: 048
     Dates: start: 20230110, end: 20230115
  2. D-0502 [Suspect]
     Active Substance: D-0502
     Indication: Breast cancer
     Dosage: THE SUBJECT HADN^T RECEIVED THE STUDY DRUG D-0502 YET PRIOR TO THE SAE
     Route: 048
  3. LERCANIDIPINE [Concomitant]
     Active Substance: LERCANIDIPINE
     Indication: Hypertension
     Dosage: 10 MG
     Route: 048
     Dates: start: 20221213
  4. CANDESARTAN [Concomitant]
     Active Substance: CANDESARTAN
     Indication: Hypertension
     Dosage: 8 MG, 1X/DAY [8 MG (8 MG,1 IN 1 D)]
     Route: 048
     Dates: start: 20221213
  5. METFORMIN [Concomitant]
     Active Substance: METFORMIN HYDROCHLORIDE
     Indication: Diabetes mellitus
     Dosage: 0.5 MG, 3X/DAY [1.5 MG (0.5 MG,3 IN 1 D)]
     Route: 048
     Dates: start: 20221213
  6. GLICLAZIDE [Concomitant]
     Active Substance: GLICLAZIDE
     Indication: Diabetes mellitus
     Dosage: 30 MG, 1X/DAY [30 MG (30 MG,1 IN 1 D)]
     Route: 048
     Dates: start: 20230106

REACTIONS (1)
  - Obstructive pancreatitis [Recovering/Resolving]

NARRATIVE: CASE EVENT DATE: 20230114
